FAERS Safety Report 23014996 (Version 1)
Quarter: 2023Q4

REPORT INFORMATION
  Report Type: Spontaneous
  Country: CN (occurrence: CN)
  Receive Date: 20231002
  Receipt Date: 20231002
  Transmission Date: 20240110
  Serious: Yes (Other)
  Sender: FDA-Public Use
  Company Number: CN-009507513-2309CHN009706

PATIENT
  Age: 83 Year
  Sex: Male

DRUGS (1)
  1. CILASTATIN SODIUM\IMIPENEM [Suspect]
     Active Substance: CILASTATIN SODIUM\IMIPENEM
     Indication: Symptomatic treatment
     Dosage: 1 GRAM, Q8H
     Route: 041
     Dates: start: 20230731, end: 20230804

REACTIONS (1)
  - Epilepsy [Recovering/Resolving]
